FAERS Safety Report 19665175 (Version 8)
Quarter: 2021Q4

REPORT INFORMATION
  Report Type: Report from Study
  Country: US (occurrence: US)
  Receive Date: 20210806
  Receipt Date: 20211116
  Transmission Date: 20220303
  Serious: Yes (Other)
  Sender: FDA-Public Use
  Company Number: NVSC2021US173468

PATIENT
  Age: 65 Year
  Sex: Female

DRUGS (1)
  1. COSENTYX [Suspect]
     Active Substance: SECUKINUMAB
     Indication: Psoriasis
     Dosage: 300 MG, QMO (Q28 DAYS) (BENEATH THE SKIN, USUALLY VIA INJECTION)
     Route: 058

REACTIONS (7)
  - Diabetes mellitus inadequate control [Unknown]
  - Arthritis [Unknown]
  - Blood glucose decreased [Unknown]
  - Eye infection [Recovering/Resolving]
  - Insomnia [Recovering/Resolving]
  - Thyroid disorder [Unknown]
  - Psoriasis [Recovering/Resolving]

NARRATIVE: CASE EVENT DATE: 20210727
